FAERS Safety Report 10482311 (Version 7)
Quarter: 2015Q2

REPORT INFORMATION
  Report Type: Report from Study
  Country: US (occurrence: US)
  Receive Date: 20140929
  Receipt Date: 20150622
  Transmission Date: 20150821
  Serious: Yes (Other)
  Sender: FDA-Public Use
  Company Number: US-SA-2014SA076792

PATIENT
  Age: 46 Year
  Sex: Female

DRUGS (3)
  1. AUBAGIO [Suspect]
     Active Substance: TERIFLUNOMIDE
     Indication: MULTIPLE SCLEROSIS
     Route: 048
     Dates: start: 20140604
  2. AUBAGIO [Suspect]
     Active Substance: TERIFLUNOMIDE
     Indication: MULTIPLE SCLEROSIS
     Route: 048
  3. TECFIDERA [Concomitant]
     Active Substance: DIMETHYL FUMARATE

REACTIONS (30)
  - JC virus infection [Unknown]
  - Weight decreased [Unknown]
  - Multiple sclerosis relapse [Unknown]
  - Pain [Recovered/Resolved]
  - Asthenia [Unknown]
  - Alopecia [Not Recovered/Not Resolved]
  - Diarrhoea [Unknown]
  - Discomfort [Unknown]
  - Skin lesion [Unknown]
  - Skin disorder [Unknown]
  - Pruritus [Unknown]
  - Hepatic enzyme increased [Unknown]
  - Myalgia [Unknown]
  - Rash macular [Unknown]
  - Nasopharyngitis [Unknown]
  - Pain [Unknown]
  - Rash [Unknown]
  - Fatigue [Not Recovered/Not Resolved]
  - Hypertension [Unknown]
  - Blister [Unknown]
  - Muscle spasms [Unknown]
  - Visual acuity reduced [Unknown]
  - Depression [Unknown]
  - Pyrexia [Unknown]
  - Urine odour abnormal [Unknown]
  - Urticaria [Unknown]
  - Abasia [Unknown]
  - Mobility decreased [Unknown]
  - Headache [Unknown]
  - Insomnia [Unknown]

NARRATIVE: CASE EVENT DATE: 2014
